FAERS Safety Report 5992571-9 (Version None)
Quarter: 2008Q4

REPORT INFORMATION
  Report Type: 
  Country: None (occurrence: None)
  Receive Date: 20081211
  Receipt Date: 20080522
  Transmission Date: 20090506
  Serious: No
  Sender: FDA-Public Use
  Company Number: US-AMGEN-KDL269777

PATIENT
  Sex: Male

DRUGS (6)
  1. ENBREL [Suspect]
     Indication: PSORIATIC ARTHROPATHY
     Route: 058
     Dates: start: 20070905
  2. METHOTREXATE [Concomitant]
     Route: 048
     Dates: start: 20060301
  3. MELOXICAM [Concomitant]
     Dates: start: 20060101
  4. ASPIRIN [Concomitant]
  5. FOLIC ACID [Concomitant]
  6. FLUTICASONE PROPIONATE [Concomitant]
     Dates: start: 20010101

REACTIONS (1)
  - HERPES ZOSTER [None]
